FAERS Safety Report 20456360 (Version 10)
Quarter: 2024Q1

REPORT INFORMATION
  Report Type: Report from Study
  Country: JP (occurrence: JP)
  Receive Date: 20220210
  Receipt Date: 20240215
  Transmission Date: 20240410
  Serious: Yes (Other)
  Sender: FDA-Public Use
  Company Number: JP-TAKEDA-2018TJP027021

PATIENT
  Age: 54 Year
  Sex: Male
  Weight: 69 kg

DRUGS (3)
  1. LEUPROLIDE ACETATE [Suspect]
     Active Substance: LEUPROLIDE ACETATE
     Indication: Bulbospinal muscular atrophy congenital
     Route: 058
     Dates: start: 20171013
  2. Daimedin [Concomitant]
     Indication: Bulbospinal muscular atrophy congenital
     Route: 048
  3. UBIDECARENONE [Concomitant]
     Active Substance: UBIDECARENONE
     Indication: Bulbospinal muscular atrophy congenital
     Dosage: 20 MILLIGRAM
     Route: 048

REACTIONS (2)
  - Erectile dysfunction [Not Recovered/Not Resolved]
  - Urticaria [Recovered/Resolved]

NARRATIVE: CASE EVENT DATE: 20180704
